FAERS Safety Report 7845878-4 (Version None)
Quarter: 2011Q4

REPORT INFORMATION
  Report Type: 
  Country: None (occurrence: None)
  Receive Date: 20111025
  Receipt Date: 20111021
  Transmission Date: 20120403
  Serious: Yes (Death)
  Sender: FDA-Public Use
  Company Number: US-ASTRAZENECA-2011SE60258

PATIENT
  Age: 77 Year
  Sex: Female

DRUGS (5)
  1. GEMZAR [Concomitant]
     Route: 042
  2. NORVASC [Concomitant]
  3. RHINOCORT [Suspect]
     Route: 045
  4. TOPROL-XL [Suspect]
     Route: 048
  5. XELODA [Concomitant]

REACTIONS (2)
  - PANCREATIC CARCINOMA METASTATIC [None]
  - MULTI-ORGAN FAILURE [None]
